FAERS Safety Report 9105035 (Version 4)
Quarter: 2013Q3

REPORT INFORMATION
  Report Type: Spontaneous
  Country: BH (occurrence: BH)
  Receive Date: 20130220
  Receipt Date: 20130823
  Transmission Date: 20140515
  Serious: Yes (Hospitalization)
  Sender: FDA-Public Use
  Company Number: BH-SANOFI-AVENTIS-2013SA015128

PATIENT
  Age: 49 Year
  Sex: Male

DRUGS (8)
  1. PLAVIX [Suspect]
     Indication: THROMBOSIS PROPHYLAXIS
     Route: 048
     Dates: start: 20130225, end: 20130301
  2. ASPIRIN [Concomitant]
     Indication: ANTIPLATELET THERAPY
     Route: 048
     Dates: start: 20120502
  3. CONCOR [Concomitant]
     Indication: BLOOD CHOLESTEROL
     Route: 048
     Dates: start: 20120502
  4. COVERSYL [Concomitant]
     Indication: ANGIOTENSIN CONVERTING ENZYME
     Route: 048
     Dates: start: 20120502
  5. NEXIUM [Concomitant]
     Indication: PROPHYLAXIS AGAINST GASTROINTESTINAL ULCER
     Route: 048
     Dates: start: 20120502
  6. CRESTOR [Concomitant]
     Indication: BLOOD CREATINE PHOSPHOKINASE BB INCREASED
     Route: 048
     Dates: start: 20120502
  7. VASTAREL [Concomitant]
     Indication: ANGINA PECTORIS
     Route: 048
     Dates: start: 20120502
  8. DIAMICRON [Concomitant]
     Indication: DIABETES MELLITUS
     Route: 048
     Dates: start: 20120502

REACTIONS (3)
  - Thrombosis in device [Not Recovered/Not Resolved]
  - Product quality issue [Unknown]
  - Drug ineffective [Not Recovered/Not Resolved]
